FAERS Safety Report 12541629 (Version 1)
Quarter: 2016Q3

REPORT INFORMATION
  Report Type: Spontaneous
  Country: US (occurrence: US)
  Receive Date: 20160708
  Receipt Date: 20160708
  Transmission Date: 20161109
  Serious: Yes (Other)
  Sender: FDA-Public Use
  Company Number: US-DSJP-DSU-2015-131858

PATIENT
  Age: 51 Year
  Sex: Male
  Weight: 68.27 kg

DRUGS (2)
  1. BENICAR HCT [Suspect]
     Active Substance: HYDROCHLOROTHIAZIDE\OLMESARTAN MEDOXOMIL
     Dosage: UNK
     Dates: start: 2010
  2. BENICAR HCT [Suspect]
     Active Substance: HYDROCHLOROTHIAZIDE\OLMESARTAN MEDOXOMIL
     Indication: HYPERTENSION
     Dosage: 20/12.5 MG, QD
     Route: 048
     Dates: start: 2006, end: 20150821

REACTIONS (8)
  - Malabsorption [Unknown]
  - Gastrooesophageal reflux disease [Not Recovered/Not Resolved]
  - Acute kidney injury [Unknown]
  - Dysphagia [Unknown]
  - Constipation [Unknown]
  - Hyperkalaemia [Recovered/Resolved]
  - Deficiency anaemia [Unknown]
  - Inflammation [Unknown]

NARRATIVE: CASE EVENT DATE: 20121015
